FAERS Safety Report 7678453-5 (Version None)
Quarter: 2011Q3

REPORT INFORMATION
  Report Type: 
  Country: None (occurrence: None)
  Receive Date: 20110811
  Receipt Date: 20110804
  Transmission Date: 20111222
  Serious: Yes (Hospitalization, Other)
  Sender: FDA-Public Use
  Company Number: US-BAYER-2011-014326

PATIENT
  Age: 52 Year
  Sex: Female
  Weight: 76.64 kg

DRUGS (6)
  1. CLOTRIMAZOLE [Concomitant]
  2. MOTRIN [Concomitant]
  3. LISINOPRIL [Concomitant]
     Indication: HYPERTENSION
     Dosage: 10 MG, QD
     Route: 048
     Dates: start: 20000101
  4. ADDERALL XR 10 [Concomitant]
     Dosage: 30 MG, QD
     Route: 048
     Dates: start: 20100101
  5. SYNTHROID [Concomitant]
     Indication: HYPOTHYROIDISM
     Dosage: 112 MCG/24HR, QD
     Route: 048
     Dates: start: 20000101
  6. YAZ [Suspect]
     Indication: PRODUCT USED FOR UNKNOWN INDICATION
     Dosage: UNK
     Dates: start: 20080801, end: 20080901

REACTIONS (6)
  - DEEP VEIN THROMBOSIS [None]
  - THROMBOPHLEBITIS SUPERFICIAL [None]
  - BILIARY DYSKINESIA [None]
  - CHOLECYSTITIS [None]
  - PAIN [None]
  - GALLBLADDER DISORDER [None]
